FAERS Safety Report 19462260 (Version 5)
Quarter: 2021Q3

REPORT INFORMATION
  Report Type: Spontaneous
  Country: GB (occurrence: GB)
  Receive Date: 20210625
  Receipt Date: 20210822
  Transmission Date: 20211014
  Serious: Yes (Death, Other)
  Sender: FDA-Public Use
  Company Number: GB-TEVA-2021-GB-1924395

PATIENT
  Age: 55 Year
  Sex: Female

DRUGS (40)
  1. CAPECITABINE. [Suspect]
     Active Substance: CAPECITABINE
     Indication: BREAST CANCER
     Dosage: 1300 MILLIGRAM
     Route: 048
     Dates: start: 20201020
  2. TRASTUZUMAB EMTANSINE [Suspect]
     Active Substance: ADO-TRASTUZUMAB EMTANSINE
     Indication: BREAST CANCER
     Dosage: 240 MILLIGRAM, Q3WK
     Route: 042
     Dates: start: 20190427, end: 20190606
  3. AMOXICILLIN. [Concomitant]
     Active Substance: AMOXICILLIN
     Indication: ABDOMINAL PAIN
     Dosage: 1875 MILLIGRAM DAILY; 625 MILLIGRAM
     Route: 048
     Dates: start: 20201211, end: 20201216
  4. CARMELLOSE SODIUM [Concomitant]
     Active Substance: CARBOXYMETHYLCELLULOSE SODIUM
     Dosage: UNK, Q6H
     Route: 060
     Dates: start: 20170526
  5. TRASTUZUMAB. [Suspect]
     Active Substance: TRASTUZUMAB
     Indication: BREAST CANCER
     Dosage: 378 MILLIGRAM
     Route: 042
     Dates: start: 20180516, end: 20190327
  6. LANSOPRAZOLE. [Concomitant]
     Active Substance: LANSOPRAZOLE
     Indication: PRODUCT USED FOR UNKNOWN INDICATION
     Dosage: 30 MILLIGRAM DAILY;
     Route: 048
     Dates: start: 20190730
  7. PARACETAMOL [Concomitant]
     Active Substance: ACETAMINOPHEN
     Indication: PRODUCT USED FOR UNKNOWN INDICATION
     Dosage: 1 INTERNATIONAL UNIT
     Route: 048
     Dates: start: 20170525
  8. TINZAPARIN [Concomitant]
     Active Substance: TINZAPARIN
     Indication: PRODUCT USED FOR UNKNOWN INDICATION
     Dosage: 12000 IU (INTERNATIONAL UNIT) DAILY; 12000 UNIT
     Route: 058
     Dates: start: 20170713
  9. TINZAPARIN [Concomitant]
     Active Substance: TINZAPARIN
     Dosage: 4500 IU (INTERNATIONAL UNIT) DAILY;
     Route: 058
     Dates: start: 20190918
  10. PERTUZUMAB. [Suspect]
     Active Substance: PERTUZUMAB
     Indication: BREAST CANCER
     Dosage: 420 MILLIGRAM, Q3WK
     Route: 042
     Dates: start: 20170614, end: 20190327
  11. TRASTUZUMAB EMTANSINE [Suspect]
     Active Substance: ADO-TRASTUZUMAB EMTANSINE
     Dosage: 160 MG
     Route: 042
     Dates: start: 20190829, end: 20200326
  12. AMOXICILLIN. [Concomitant]
     Active Substance: AMOXICILLIN
     Indication: PYREXIA
  13. CALCICHEW D3 FORTE [Concomitant]
     Active Substance: CALCIUM\CHOLECALCIFEROL
     Indication: PRODUCT USED FOR UNKNOWN INDICATION
     Dosage: UNK, TID
     Route: 048
     Dates: start: 20170525
  14. IKERVIS [Concomitant]
     Active Substance: CYCLOSPORINE
     Indication: PRODUCT USED FOR UNKNOWN INDICATION
     Dosage: UNK
     Route: 047
     Dates: start: 201708
  15. SANDO?K [Concomitant]
     Indication: PRODUCT USED FOR UNKNOWN INDICATION
     Dosage: UNK
     Dates: start: 20170525
  16. PACLITAXEL. [Suspect]
     Active Substance: PACLITAXEL
     Dosage: 300 MILLIGRAM, Q3WK
     Route: 042
     Dates: start: 20170816, end: 20170906
  17. AMITRIPTYLINE HYDROCHLORIDE. [Concomitant]
     Active Substance: AMITRIPTYLINE HYDROCHLORIDE
     Indication: DEPRESSED MOOD
     Dosage: 5 MILLIGRAM DAILY; 5 MILLIGRAM
     Route: 048
     Dates: start: 20190827
  18. CLOBETASOL PROPIONATE. [Concomitant]
     Active Substance: CLOBETASOL PROPIONATE
     Indication: PRODUCT USED FOR UNKNOWN INDICATION
     Dosage: UNK
     Route: 061
     Dates: start: 20170210
  19. PACLITAXEL. [Suspect]
     Active Substance: PACLITAXEL
     Indication: BREAST CANCER
     Dosage: 375 MILLIGRAM, Q3WK
     Route: 042
     Dates: start: 20170705, end: 20170726
  20. PACLITAXEL. [Suspect]
     Active Substance: PACLITAXEL
     Dosage: 450 MILLIGRAM, Q3WK
     Route: 042
     Dates: start: 20170614, end: 20170614
  21. TRASTUZUMAB. [Suspect]
     Active Substance: TRASTUZUMAB
     Dosage: 525 MILLIGRAM, LOADING DOSE
     Route: 042
     Dates: start: 20170524, end: 20170524
  22. CALCICHEW D3 FORTE [Concomitant]
     Active Substance: CALCIUM\CHOLECALCIFEROL
     Dosage: UNK, Q8H
     Route: 048
  23. CHLORHEXIDINE GLUCONATE. [Concomitant]
     Active Substance: CHLORHEXIDINE GLUCONATE
     Dosage: 40 ML DAILY; 10 MILLILITER, QID
     Route: 061
     Dates: start: 20170525
  24. DOMPERIDONE [Concomitant]
     Active Substance: DOMPERIDONE
     Indication: PRODUCT USED FOR UNKNOWN INDICATION
     Dosage: 30 MILLIGRAM DAILY; 10 MILLIGRAM
     Route: 048
     Dates: start: 20170523
  25. VANCOMYCIN [Concomitant]
     Active Substance: VANCOMYCIN
     Indication: PRODUCT USED FOR UNKNOWN INDICATION
     Dosage: 500 MILLIGRAM DAILY; 125 MILLIGRAM,
     Route: 048
     Dates: start: 20201030
  26. TRASTUZUMAB. [Suspect]
     Active Substance: TRASTUZUMAB
     Dosage: 400 MILLIGRAM
     Route: 042
     Dates: start: 20170614, end: 20180425
  27. CETIRIZINE [Concomitant]
     Active Substance: CETIRIZINE HYDROCHLORIDE
     Indication: PRODUCT USED FOR UNKNOWN INDICATION
     Dosage: 10 MILLIGRAM DAILY;
     Route: 048
     Dates: start: 20190313
  28. CHLORHEXIDINE GLUCONATE. [Concomitant]
     Active Substance: CHLORHEXIDINE GLUCONATE
     Indication: PRODUCT USED FOR UNKNOWN INDICATION
     Dosage: 40 ML DAILY; 10 MILLILITER, Q6H
     Route: 061
  29. FUSIDIC ACID [Concomitant]
     Active Substance: FUSIDIC ACID
     Indication: PRODUCT USED FOR UNKNOWN INDICATION
     Dosage: UNK
     Dates: start: 201905
  30. LOPERAMIDE [Concomitant]
     Active Substance: LOPERAMIDE
     Indication: PRODUCT USED FOR UNKNOWN INDICATION
     Dosage: 2 MILLIGRAM, AS NECESSARY
     Route: 048
     Dates: start: 20170613
  31. METRONIDAZOLE. [Concomitant]
     Active Substance: METRONIDAZOLE
     Dosage: UNK
     Dates: start: 20200909, end: 20200914
  32. TRANEXAMIC ACID. [Concomitant]
     Active Substance: TRANEXAMIC ACID
     Indication: PRODUCT USED FOR UNKNOWN INDICATION
     Dosage: UNK
     Dates: start: 20190722
  33. PERTUZUMAB. [Suspect]
     Active Substance: PERTUZUMAB
     Dosage: 840 MILLIGRAM, LOADING DOSE
     Route: 042
     Dates: start: 20170524, end: 20170524
  34. TRASTUZUMAB EMTANSINE [Suspect]
     Active Substance: ADO-TRASTUZUMAB EMTANSINE
     Dosage: 200 MILLIGRAM, Q3WK
     Route: 042
     Dates: start: 20190627, end: 20190718
  35. APIXABAN [Concomitant]
     Active Substance: APIXABAN
     Indication: PRODUCT USED FOR UNKNOWN INDICATION
     Dosage: 5 MILLIGRAM DAILY; 2.5 MILLIGRAM
     Route: 048
     Dates: start: 20190819, end: 20190917
  36. CHLORPHENAMINE [Concomitant]
     Active Substance: CHLORPHENIRAMINE MALEATE
     Indication: PRODUCT USED FOR UNKNOWN INDICATION
     Dosage: 16 MILLIGRAM DAILY; 4 MILLIGRAM
     Route: 048
     Dates: start: 20170526
  37. METRONIDAZOLE. [Concomitant]
     Active Substance: METRONIDAZOLE
     Indication: PRODUCT USED FOR UNKNOWN INDICATION
     Dosage: 400 MILLIGRAM, QMO
     Route: 048
     Dates: start: 20201116, end: 202011
  38. VANCOMYCIN [Concomitant]
     Active Substance: VANCOMYCIN
     Dosage: 2000 MILLIGRAM DAILY; 500 MILLIGRAM
     Route: 048
     Dates: start: 20201104, end: 20201113
  39. DOCETAXEL. [Suspect]
     Active Substance: DOCETAXEL
     Indication: BREAST CANCER
     Dosage: 130 MILLIGRAM
     Route: 042
     Dates: start: 20170525, end: 20170525
  40. ZOLEDRONIC ACID [Concomitant]
     Active Substance: ZOLEDRONIC ACID
     Indication: PRODUCT USED FOR UNKNOWN INDICATION
     Dosage: 4 MILLIGRAM, EVERY3?4 WEEKS
     Route: 042
     Dates: start: 20170525

REACTIONS (5)
  - Disease progression [Fatal]
  - Biliary sepsis [Recovered/Resolved]
  - Device related infection [Not Recovered/Not Resolved]
  - Tenosynovitis [Recovered/Resolved]
  - Off label use [Unknown]

NARRATIVE: CASE EVENT DATE: 20190604
